FAERS Safety Report 4815040-8 (Version None)
Quarter: 2005Q4

REPORT INFORMATION
  Report Type: 
  Country: None (occurrence: None)
  Receive Date: 20051026
  Receipt Date: 20051010
  Transmission Date: 20060501
  Serious: Yes (Other)
  Sender: FDA-Public Use
  Company Number: GBS051018716

PATIENT
  Age: 63 Year
  Sex: Female

DRUGS (9)
  1. HUMULIN 70/30 [Suspect]
     Dates: start: 19900101
  2. ATENOLOL [Concomitant]
  3. DIIHYDROCODEINE [Concomitant]
  4. CO-AMILOFRUSE [Concomitant]
  5. OMEPRAZOLE [Concomitant]
  6. INTRALGIN [Concomitant]
  7. DIGOXIN [Concomitant]
  8. WARFARIN SODIUM [Concomitant]
  9. ADIPINE MR [Concomitant]

REACTIONS (6)
  - BILIARY DILATATION [None]
  - GENERAL PHYSICAL HEALTH DETERIORATION [None]
  - NEPHROLITHIASIS [None]
  - SPLENOMEGALY [None]
  - TRANSIENT ISCHAEMIC ATTACK [None]
  - VISUAL ACUITY REDUCED [None]
